FAERS Safety Report 23586473 (Version 1)
Quarter: 2024Q1

REPORT INFORMATION
  Report Type: Spontaneous
  Country: US (occurrence: None)
  Receive Date: 20240229
  Receipt Date: 20240229
  Transmission Date: 20240410
  Serious: Yes (Death)
  Sender: FDA-Public Use
  Company Number: None

PATIENT
  Age: 46 Year
  Sex: Female
  Weight: 54.43 kg

DRUGS (1)
  1. MOUNJARO [Suspect]
     Active Substance: TIRZEPATIDE
     Indication: Type 2 diabetes mellitus
     Dosage: FREQUENCY : WEEKLY;?
     Route: 058
     Dates: start: 20231229, end: 20240216

REACTIONS (5)
  - Therapy change [None]
  - Vomiting projectile [None]
  - Diarrhoea [None]
  - Weight decreased [None]
  - Gastrointestinal disorder [None]

NARRATIVE: CASE EVENT DATE: 20240222
